FAERS Safety Report 17864384 (Version 2)
Quarter: 2021Q2

REPORT INFORMATION
  Report Type: Report from Study
  Country: DE (occurrence: DE)
  Receive Date: 20200605
  Receipt Date: 20210624
  Transmission Date: 20210717
  Serious: Yes (Life-Threatening, Hospitalization, Disabling, Other)
  Sender: FDA-Public Use
  Company Number: DE-GILEAD-2019-0399023

PATIENT
  Age: 48 Year
  Sex: Male
  Weight: 90 kg

DRUGS (10)
  1. EISEN [IRON] [Concomitant]
     Active Substance: IRON
  2. SOFOSBUVIR W/VELPATASVIR/VOXILAPREVIR [Suspect]
     Active Substance: SOFOSBUVIR\VELPATASVIR\VOXILAPREVIR
     Indication: CHRONIC HEPATITIS C
     Dosage: 1 DF, QD
     Route: 048
     Dates: start: 20190131, end: 20190423
  3. MAGNESIUM [Concomitant]
     Active Substance: MAGNESIUM
  4. TORASEMID [Concomitant]
     Active Substance: TORSEMIDE
  5. TAXOFIT [Concomitant]
     Active Substance: MINERALS\VITAMINS
  6. IRON [Concomitant]
     Active Substance: IRON
  7. CALCIUM [Concomitant]
     Active Substance: CALCIUM
  8. PANTOPRAZOL [PANTOPRAZOLE] [Concomitant]
     Active Substance: PANTOPRAZOLE
  9. XIFAXAN [Concomitant]
     Active Substance: RIFAXIMIN
  10. CARVEDILOL. [Concomitant]
     Active Substance: CARVEDILOL

REACTIONS (9)
  - Fatigue [Not Recovered/Not Resolved]
  - Nausea [Not Recovered/Not Resolved]
  - Hepatic lesion [Unknown]
  - Headache [Not Recovered/Not Resolved]
  - Alpha 1 foetoprotein increased [Unknown]
  - Muscle spasms [Unknown]
  - Arthralgia [Unknown]
  - Diarrhoea [Not Recovered/Not Resolved]
  - Hepatocellular carcinoma [Unknown]

NARRATIVE: CASE EVENT DATE: 20191008
